FAERS Safety Report 10236705 (Version 1)
Quarter: 2014Q2

REPORT INFORMATION
  Report Type: Spontaneous
  Country: BR (occurrence: BR)
  Receive Date: 20140613
  Receipt Date: 20140613
  Transmission Date: 20141212
  Serious: Yes (Hospitalization)
  Sender: FDA-Public Use
  Company Number: BR-ELI_LILLY_AND_COMPANY-BR201406000783

PATIENT
  Age: 70 Year
  Sex: Female
  Weight: 59 kg

DRUGS (11)
  1. HUMULIN N [Suspect]
     Indication: DIABETES MELLITUS
     Dosage: UNK, QD
     Route: 058
     Dates: start: 2011
  2. METFORMINA                         /00082702/ [Concomitant]
     Indication: DIABETES MELLITUS
     Dosage: 0.5 DF, TID
     Route: 065
     Dates: start: 2010
  3. METFORMINA                         /00082702/ [Concomitant]
     Dosage: 3 DF, QD
     Route: 065
     Dates: start: 2012
  4. GLICAZIDA [Concomitant]
     Indication: PRODUCT USED FOR UNKNOWN INDICATION
     Dosage: 30 MG, TID
     Route: 065
  5. ONGLYZA [Concomitant]
     Indication: DIABETES MELLITUS
     Dosage: 5 MG, QD
     Route: 065
  6. CLOPIDOGREL BISULFATE [Concomitant]
     Indication: DIABETES MELLITUS
     Dosage: 75 MG, QD
     Route: 065
  7. CLOPIDOGREL BISULFATE [Concomitant]
     Indication: HYPERTENSION
  8. ALENDRONATO [Concomitant]
     Indication: OSTEOPOROSIS
     Dosage: 70 MG, WEEKLY (1/W)
     Route: 065
  9. SINVASTATINA [Concomitant]
     Indication: BLOOD CHOLESTEROL
     Dosage: 40 MG, EACH EVENING
     Route: 065
  10. VITAMIN D3 [Concomitant]
     Indication: OSTEOPOROSIS
     Dosage: 25000 IU, WEEKLY (1/W)
     Route: 065
  11. AMLODIPINE BESILATE [Concomitant]
     Indication: BLOOD PRESSURE
     Dosage: 5 MG, EACH EVENING
     Route: 065

REACTIONS (6)
  - Intestinal haemorrhage [Recovered/Resolved]
  - Anaemia [Recovered/Resolved]
  - Asthenia [Recovered/Resolved]
  - Dizziness [Recovered/Resolved]
  - Injection site pain [Unknown]
  - Gait disturbance [Recovered/Resolved]
